FAERS Safety Report 5564574-X (Version None)
Quarter: 2007Q4

REPORT INFORMATION
  Report Type: 
  Country: None (occurrence: None)
  Receive Date: 20071218
  Receipt Date: 20071213
  Transmission Date: 20080405
  Serious: Yes (Death)
  Sender: FDA-Public Use
  Company Number: JP-BAYER-200711052BYL

PATIENT
  Age: 77 Year
  Sex: Male

DRUGS (2)
  1. FLUDARA [Suspect]
     Indication: B-CELL SMALL LYMPHOCYTIC LYMPHOMA
     Dosage: TOTAL DAILY DOSE: 50 MG  UNIT DOSE: 10 MG
     Route: 048
     Dates: start: 20071018, end: 20071022
  2. FLUDARA [Suspect]
     Dosage: TOTAL DAILY DOSE: 50 MG
     Route: 048
     Dates: start: 20071201, end: 20071205

REACTIONS (2)
  - ANOREXIA [None]
  - HYPERKALAEMIA [None]
